FAERS Safety Report 14327132 (Version 1)
Quarter: 2017Q4

REPORT INFORMATION
  Report Type: Spontaneous
  Country: GB (occurrence: GB)
  Receive Date: 20171227
  Receipt Date: 20171227
  Transmission Date: 20180321
  Serious: Yes (Death, Hospitalization, Other)
  Sender: FDA-Public Use
  Company Number: PHHY2015GB177427

PATIENT
  Sex: Male

DRUGS (3)
  1. ESBRIET [Suspect]
     Active Substance: PIRFENIDONE
     Dosage: 2403 MG, UNK
     Route: 048
     Dates: start: 20130211
  2. ESBRIET [Suspect]
     Active Substance: PIRFENIDONE
     Indication: IDIOPATHIC PULMONARY FIBROSIS
     Dosage: 2403 MG, UNK
     Route: 048
     Dates: start: 20130903
  3. AZITHROMYCIN ANHYDROUS. [Suspect]
     Active Substance: AZITHROMYCIN ANHYDROUS
     Indication: OSTEOMYELITIS
     Route: 065

REACTIONS (53)
  - Pulmonary function test decreased [Fatal]
  - Tearfulness [Fatal]
  - Productive cough [Fatal]
  - Haemoptysis [Fatal]
  - Pruritus [Fatal]
  - Lower respiratory tract infection [Fatal]
  - Osteomyelitis [Fatal]
  - Oxygen saturation decreased [Fatal]
  - Seborrhoea [Fatal]
  - Seasonal allergy [Fatal]
  - Pulmonary oedema [Fatal]
  - Viral infection [Fatal]
  - Chest pain [Fatal]
  - Increased upper airway secretion [Fatal]
  - Malaise [Fatal]
  - Heart rate increased [Fatal]
  - Cough [Fatal]
  - Musculoskeletal stiffness [Fatal]
  - Upper-airway cough syndrome [Fatal]
  - Condition aggravated [Fatal]
  - Vertigo [Fatal]
  - General physical health deterioration [Fatal]
  - Headache [Fatal]
  - Gastrooesophageal reflux disease [Fatal]
  - Tooth injury [Fatal]
  - Total lung capacity decreased [Fatal]
  - Rash [Fatal]
  - Abdominal discomfort [Fatal]
  - Alopecia [Fatal]
  - Skin irritation [Fatal]
  - Asthenia [Fatal]
  - Hypotension [Fatal]
  - Depressed mood [Fatal]
  - Pneumonia [Fatal]
  - Fatigue [Fatal]
  - Jaw cyst [Fatal]
  - Gastrointestinal disorder [Fatal]
  - Weight decreased [Fatal]
  - Cataract [Fatal]
  - Insomnia [Fatal]
  - Drug effect decreased [Fatal]
  - Dyspnoea [Fatal]
  - Death [Fatal]
  - Sunburn [Fatal]
  - Hiatus hernia [Fatal]
  - Frequent bowel movements [Fatal]
  - Lethargy [Fatal]
  - Erythema [Fatal]
  - Abdominal pain upper [Fatal]
  - Anxiety [Fatal]
  - Nasopharyngitis [Fatal]
  - Tremor [Fatal]
  - Tinnitus [Fatal]

NARRATIVE: CASE EVENT DATE: 201501
